FAERS Safety Report 15877419 (Version 2)
Quarter: 2019Q1

REPORT INFORMATION
  Report Type: Spontaneous
  Country: US (occurrence: US)
  Receive Date: 20190128
  Receipt Date: 20190228
  Transmission Date: 20190417
  Serious: No
  Sender: FDA-Public Use
  Company Number: US-TEVA-2019-US-995350

PATIENT
  Age: 55 Year
  Sex: Female

DRUGS (1)
  1. MINOXIDIL 2% FOR WOMEN [Suspect]
     Active Substance: MINOXIDIL
     Indication: ALOPECIA
     Dosage: SOLUTION
     Route: 061
     Dates: start: 201811

REACTIONS (3)
  - Alopecia [Unknown]
  - Alopecia [Not Recovered/Not Resolved]
  - Drug ineffective [Unknown]

NARRATIVE: CASE EVENT DATE: 201811
